FAERS Safety Report 24591157 (Version 1)
Quarter: 2024Q4

REPORT INFORMATION
  Report Type: Spontaneous
  Country: CN (occurrence: CN)
  Receive Date: 20241108
  Receipt Date: 20241108
  Transmission Date: 20250115
  Serious: Yes (Hospitalization, Other)
  Sender: ORGANON
  Company Number: CN-ORGANON-O2411CHN000218

PATIENT
  Age: 58 Year
  Sex: Male
  Weight: 42 kg

DRUGS (4)
  1. SINGULAIR [Suspect]
     Active Substance: MONTELUKAST SODIUM
     Indication: Dyspnoea
     Dosage: ORAL, 10MG, QD
     Route: 048
     Dates: start: 20240828, end: 20241018
  2. ACETYLCYSTEINE [Concomitant]
     Active Substance: ACETYLCYSTEINE
     Indication: Productive cough
     Dosage: ORAL, 0.2G, TID
     Route: 048
     Dates: start: 20240828, end: 20241031
  3. COMPOUND DANSHEN [Concomitant]
     Indication: Promotion of peripheral circulation
     Dosage: ORAL, 10 PILLS, TID (DRIPPING PILLS)
     Route: 048
     Dates: start: 20240828, end: 20241031
  4. INDACATEROL MALEATE AND GLYCOPYRRONIUM BROMIDE [Concomitant]
     Indication: Chronic obstructive pulmonary disease
     Dosage: INHALATION DRUG DELIVERY, 1 UNIT, (QD), (POWDER FOR MSLGTION)
     Dates: start: 20240828, end: 20241031

REACTIONS (6)
  - Depression [Recovered/Resolved]
  - Suicidal ideation [Recovered/Resolved]
  - Chest discomfort [Recovering/Resolving]
  - Sleep disorder [Unknown]
  - Mood altered [Recovering/Resolving]
  - Product use in unapproved indication [Unknown]

NARRATIVE: CASE EVENT DATE: 20240828
